FAERS Safety Report 10740742 (Version 1)
Quarter: 2015Q1

REPORT INFORMATION
  Report Type: Spontaneous
  Country: FR (occurrence: None)
  Receive Date: 20150123
  Receipt Date: 20150123
  Transmission Date: 20150721
  Serious: Yes (Hospitalization)
  Sender: FDA-Public Use
  Company Number: 8006022

PATIENT
  Age: 84 Year
  Sex: Male

DRUGS (4)
  1. PRADAXA [Suspect]
     Active Substance: DABIGATRAN ETEXILATE MESYLATE
     Indication: ATRIAL FIBRILLATION
     Dosage: 1 DF, 2 IN 1 D
     Route: 048
  2. LEVOTHYROX (LEVOTHYROXINE SODIUM) (50 MICROGRAM, TABLET) (LEVOTHYROXINE SODIUM) [Suspect]
     Active Substance: LEVOTHYROXINE
     Indication: HYPOTHYROIDISM
     Dosage: 1 DF, 1 IN- 2
     Route: 048
  3. LASILIX /00032601/ (FUROSEMIDE) [Concomitant]
  4. ALDACTONE /00006201/ (SPIRONOLACTONE) [Concomitant]

REACTIONS (5)
  - Erythema [None]
  - Haemarthrosis [None]
  - Feeling hot [None]
  - Prothrombin time ratio abnormal [None]
  - Arthralgia [None]

NARRATIVE: CASE EVENT DATE: 20141204
